FAERS Safety Report 8864897 (Version 1)
Quarter: 2012Q4

REPORT INFORMATION
  Report Type: 
  Country: US (occurrence: US)
  Receive Date: 20121024
  Receipt Date: 20121024
  Transmission Date: 20130627
  Serious: No
  Sender: FDA-Public Use
  Company Number: US-AMGEN-USASP2012000424

PATIENT
  Age: 58 Year
  Sex: Male

DRUGS (2)
  1. ENBREL [Suspect]
     Indication: ANKYLOSING SPONDYLITIS
     Dosage: 50 mg, qwk
     Dates: start: 20050101
  2. REMICAIDE [Concomitant]
     Dosage: UNK UNK, q2wk

REACTIONS (6)
  - Ankylosing spondylitis [Recovered/Resolved]
  - Incorrect storage of drug [Recovered/Resolved]
  - Oropharyngeal pain [Not Recovered/Not Resolved]
  - Rash generalised [Unknown]
  - Injection site pain [Unknown]
  - Nasopharyngitis [Not Recovered/Not Resolved]
